FAERS Safety Report 9467683 (Version 1)
Quarter: 2013Q3

REPORT INFORMATION
  Report Type: Spontaneous
  Country: US (occurrence: None)
  Receive Date: 20130819
  Receipt Date: 20130819
  Transmission Date: 20140515
  Serious: Yes (Other)
  Sender: FDA-Public Use
  Company Number: None

PATIENT
  Age: 35 Year
  Sex: Female
  Weight: 58.06 kg

DRUGS (2)
  1. CIPROFLOXACIN [Suspect]
     Indication: URINARY TRACT INFECTION
     Dosage: 2 TABLETS  TWICE DAILY  TAKEN BY MOUTH
     Route: 048
     Dates: start: 20130815, end: 20130816
  2. CIPROFLOXACIN [Suspect]
     Indication: KIDNEY INFECTION
     Dosage: 2 TABLETS  TWICE DAILY  TAKEN BY MOUTH
     Route: 048
     Dates: start: 20130815, end: 20130816

REACTIONS (5)
  - Rash [None]
  - Rash [None]
  - Insomnia [None]
  - Nightmare [None]
  - Mental status changes [None]
